FAERS Safety Report 14705121 (Version 1)
Quarter: 2018Q2

REPORT INFORMATION
  Report Type: Spontaneous
  Country: CN (occurrence: CN)
  Receive Date: 20180402
  Receipt Date: 20180402
  Transmission Date: 20180711
  Serious: Yes (Other)
  Sender: FDA-Public Use
  Company Number: CN-JNJFOC-20180331761

PATIENT
  Age: 68 Year
  Sex: Male
  Weight: 62 kg

DRUGS (2)
  1. DUROGESIC D TRANS [Suspect]
     Active Substance: FENTANYL
     Indication: PAIN
     Route: 062
     Dates: start: 20171017, end: 20171017
  2. MANNATIDE [Concomitant]
     Indication: NEOPLASM MALIGNANT
     Route: 041
     Dates: start: 20171017, end: 20171017

REACTIONS (8)
  - Off label use [Unknown]
  - Gastrointestinal disorder [Recovered/Resolved]
  - Blood pressure increased [Recovered/Resolved]
  - Pallor [Recovered/Resolved]
  - Wheezing [Recovered/Resolved]
  - Dyspnoea [Recovered/Resolved]
  - Hyperhidrosis [Recovered/Resolved]
  - Inappropriate schedule of drug administration [Unknown]

NARRATIVE: CASE EVENT DATE: 20171017
